FAERS Safety Report 23643060 (Version 2)
Quarter: 2024Q2

REPORT INFORMATION
  Report Type: Spontaneous
  Country: US (occurrence: US)
  Receive Date: 20240318
  Receipt Date: 20240510
  Transmission Date: 20240715
  Serious: No
  Sender: FDA-Public Use
  Company Number: US-PFIZER INC-202400065674

PATIENT
  Age: 68 Year
  Sex: Female

DRUGS (1)
  1. NURTEC ODT [Suspect]
     Active Substance: RIMEGEPANT SULFATE
     Indication: Migraine
     Dosage: 1 DF
     Dates: start: 2022

REACTIONS (6)
  - Rash [Recovering/Resolving]
  - Nightmare [Unknown]
  - Depression [Unknown]
  - Insomnia [Unknown]
  - Rash macular [Unknown]
  - Paranoia [Unknown]

NARRATIVE: CASE EVENT DATE: 20220101
